FAERS Safety Report 24427357 (Version 1)
Quarter: 2024Q4

REPORT INFORMATION
  Report Type: Report from Study
  Country: US (occurrence: US)
  Receive Date: 20241011
  Receipt Date: 20241011
  Transmission Date: 20250115
  Serious: Yes (Life-Threatening, Other)
  Sender: MYLAN
  Company Number: US-MYLANLABS-2024M1092016

PATIENT
  Sex: Female

DRUGS (5)
  1. EPIPEN [Suspect]
     Active Substance: EPINEPHRINE
     Indication: Hypersensitivity
     Dosage: UNK
     Route: 065
  2. SHINGRIX [Suspect]
     Active Substance: RECOMBINANT VARICELLA ZOSTER VIRUS (VZV) GLYCOPROTEIN E
     Indication: Immunisation
     Dosage: UNK (SINGLE)
     Route: 065
  3. TOZINAMERAN [Suspect]
     Active Substance: TOZINAMERAN
     Indication: COVID-19 immunisation
     Dosage: UNK, (AS DOSE 1, SINGLE)
     Route: 065
  4. INFLUENZA VIRUS VACCINE [Concomitant]
     Active Substance: INFLUENZA VIRUS VACCINE
     Indication: Immunisation
     Dosage: UNK (SINGLE)
     Route: 065
  5. PNEUMOCOCCAL VACCINE POLYVALENT NOS [Concomitant]
     Active Substance: PNEUMOCOCCAL VACCINE, POLYVALENT
     Indication: Immunisation
     Dosage: UNK (SINGLE)
     Route: 065

REACTIONS (3)
  - Anaphylactic reaction [Unknown]
  - Diabetes mellitus [Unknown]
  - Anxiety [Unknown]
